FAERS Safety Report 10481099 (Version 1)
Quarter: 2014Q3

REPORT INFORMATION
  Report Type: Spontaneous
  Country: US (occurrence: US)
  Receive Date: 20140929
  Receipt Date: 20140929
  Transmission Date: 20150326
  Serious: Yes (Other)
  Sender: FDA-Public Use
  Company Number: US-SA-2014SA131543

PATIENT
  Age: 34 Year
  Sex: Male

DRUGS (2)
  1. LANTUS SOLOSTAR [Suspect]
     Active Substance: INSULIN GLARGINE
     Indication: TYPE 2 DIABETES MELLITUS
     Dosage: 15-20 UNITS DAILY
     Route: 065
  2. SOLOSTAR [Concomitant]
     Active Substance: DEVICE

REACTIONS (3)
  - Visual impairment [Unknown]
  - Hearing impaired [Unknown]
  - Macular degeneration [Unknown]
